FAERS Safety Report 10647879 (Version 2)
Quarter: 2014Q4

REPORT INFORMATION
  Report Type: Report from Study
  Country: RO (occurrence: RO)
  Receive Date: 20141212
  Receipt Date: 20141212
  Transmission Date: 20150529
  Serious: Yes (Hospitalization)
  Sender: FDA-Public Use
  Company Number: RO-BEH-2011029121

PATIENT
  Sex: Male

DRUGS (18)
  1. SERETIDE [Concomitant]
     Active Substance: FLUTICASONE FUROATE\SALMETEROL XINAFOATE
     Dates: start: 20041015
  2. CLARITROMICINA [Concomitant]
     Active Substance: CLARITHROMYCIN
     Route: 048
     Dates: start: 2007
  3. OMEZ [Concomitant]
     Active Substance: OMEPRAZOLE
     Route: 048
     Dates: start: 2006
  4. PARACETAMOL [Concomitant]
     Active Substance: ACETAMINOPHEN
     Route: 048
     Dates: start: 1993
  5. MEDROL [Concomitant]
     Active Substance: METHYLPREDNISOLONE
     Route: 048
     Dates: start: 20110920, end: 20110924
  6. MEDROL [Concomitant]
     Active Substance: METHYLPREDNISOLONE
     Route: 048
     Dates: start: 20110927, end: 20110928
  7. ZEMAIRA [Suspect]
     Active Substance: .ALPHA.1-PROTEINASE INHIBITOR HUMAN
     Indication: ALPHA-1 ANTI-TRYPSIN DEFICIENCY
     Route: 042
     Dates: start: 20110606, end: 20110627
  8. XANAX [Concomitant]
     Active Substance: ALPRAZOLAM
     Route: 048
     Dates: start: 2010
  9. VENTOLIN [Concomitant]
     Active Substance: ALBUTEROL SULFATE
     Dates: start: 2000
  10. MEDROL [Concomitant]
     Active Substance: METHYLPREDNISOLONE
     Route: 048
     Dates: start: 20110929, end: 20110930
  11. AZITROX [Concomitant]
     Route: 048
     Dates: start: 20111118, end: 20111122
  12. ZEMAIRA [Suspect]
     Active Substance: .ALPHA.1-PROTEINASE INHIBITOR HUMAN
     Route: 042
     Dates: start: 20110712
  13. SPIRIVA [Concomitant]
     Active Substance: TIOTROPIUM BROMIDE MONOHYDRATE
     Dates: start: 2007
  14. MEDROL [Concomitant]
     Active Substance: METHYLPREDNISOLONE
     Route: 048
     Dates: start: 20111110, end: 20111122
  15. FLONIDAN [Concomitant]
     Active Substance: LORATADINE
     Route: 048
     Dates: start: 2008
  16. MEDROL [Concomitant]
     Active Substance: METHYLPREDNISOLONE
     Route: 048
     Dates: start: 20111001, end: 20111001
  17. THEOTARD [Concomitant]
     Route: 048
     Dates: start: 2000
  18. MEDROL [Concomitant]
     Active Substance: METHYLPREDNISOLONE
     Route: 048
     Dates: start: 20110925, end: 20110926

REACTIONS (2)
  - Enterocolitis [Recovered/Resolved]
  - Chronic obstructive pulmonary disease [Recovered/Resolved]

NARRATIVE: CASE EVENT DATE: 20110630
